FAERS Safety Report 8402338-X (Version None)
Quarter: 2012Q2

REPORT INFORMATION
  Report Type: 
  Country: None (occurrence: None)
  Receive Date: 20120601
  Receipt Date: 20120522
  Transmission Date: 20120825
  Serious: Yes (Hospitalization)
  Sender: FDA-Public Use
  Company Number: IT-BRISTOL-MYERS SQUIBB COMPANY-16648321

PATIENT
  Age: 45 Year
  Sex: Female

DRUGS (3)
  1. EMTRICITABINE [Suspect]
     Indication: HIV INFECTION
     Dates: start: 20090901
  2. TENOFOVIR DISOPROXIL FUMARATE [Suspect]
     Indication: HIV INFECTION
     Dates: start: 20050501
  3. ATAZANAVIR [Suspect]
     Indication: HIV INFECTION
     Dates: start: 20090901

REACTIONS (6)
  - IMMUNE RECONSTITUTION SYNDROME [None]
  - RHODOCOCCUS INFECTION [None]
  - PERITONITIS [None]
  - B-CELL LYMPHOMA [None]
  - OESOPHAGEAL CANDIDIASIS [None]
  - LARGE INTESTINE PERFORATION [None]
